FAERS Safety Report 9375450 (Version 2)
Quarter: 2013Q3

REPORT INFORMATION
  Report Type: Report from Study
  Country: US (occurrence: US)
  Receive Date: 20130628
  Receipt Date: 20130705
  Transmission Date: 20140515
  Serious: Yes (Other)
  Sender: FDA-Public Use
  Company Number: US-ABBOTT-13P-163-1108240-00

PATIENT
  Age: 32 Year
  Sex: Female

DRUGS (4)
  1. HUMIRA [Suspect]
     Indication: CROHN^S DISEASE
     Dates: start: 200904
  2. HUMIRA [Suspect]
     Dates: start: 201304
  3. ZOLOFT [Concomitant]
     Indication: ANXIETY
     Dosage: WEANING OFF ZOLOFT
  4. ZOLOFT [Concomitant]

REACTIONS (10)
  - Nasal septum deviation [Not Recovered/Not Resolved]
  - Injection site mass [Not Recovered/Not Resolved]
  - White blood cell count increased [Unknown]
  - Anxiety [Unknown]
  - Injection site warmth [Not Recovered/Not Resolved]
  - Injection site oedema [Not Recovered/Not Resolved]
  - Injection site erythema [Not Recovered/Not Resolved]
  - Injection site reaction [Not Recovered/Not Resolved]
  - Injection site pruritus [Not Recovered/Not Resolved]
  - Injection site bruising [Unknown]
